FAERS Safety Report 11857615 (Version 1)
Quarter: 2015Q4

REPORT INFORMATION
  Report Type: Spontaneous
  Country: US (occurrence: None)
  Receive Date: 20151221
  Receipt Date: 20151221
  Transmission Date: 20160305
  Serious: No
  Sender: FDA-Public Use
  Company Number: None

PATIENT
  Age: 59 Year
  Sex: Male

DRUGS (6)
  1. PREDNISONE. [Concomitant]
     Active Substance: PREDNISONE
  2. LORATADINE. [Concomitant]
     Active Substance: LORATADINE
  3. XELJANZ [Suspect]
     Active Substance: TOFACITINIB CITRATE
     Indication: RHEUMATOID ARTHRITIS
     Route: 048
     Dates: start: 20150715, end: 20151211
  4. FLOMAX [Concomitant]
     Active Substance: TAMSULOSIN HYDROCHLORIDE
  5. PLAQUENIL [Concomitant]
     Active Substance: HYDROXYCHLOROQUINE SULFATE
  6. METHOTREXATE [Concomitant]
     Active Substance: METHOTREXATE

REACTIONS (1)
  - Contusion [None]

NARRATIVE: CASE EVENT DATE: 20151201
